FAERS Safety Report 9308241 (Version 2)
Quarter: 2013Q2

REPORT INFORMATION
  Report Type: Spontaneous
  Country: DE (occurrence: DE)
  Receive Date: 20130524
  Receipt Date: 20130524
  Transmission Date: 20140414
  Serious: Yes (Other)
  Sender: FDA-Public Use
  Company Number: DE-PFIZER INC-HQ1464625MAR2002

PATIENT
  Age: 53 Year
  Sex: Female

DRUGS (2)
  1. PANTOZOL [Suspect]
     Indication: HAEMATEMESIS
     Dosage: 40 MG, 2X/DAY
     Route: 042
     Dates: start: 20020310, end: 20020310
  2. BAYPEN [Suspect]
     Indication: PNEUMONIA
     Dosage: 2 G
     Route: 042
     Dates: start: 20020310, end: 20020310

REACTIONS (1)
  - Pancytopenia [Not Recovered/Not Resolved]
